FAERS Safety Report 7114566-4 (Version None)
Quarter: 2010Q4

REPORT INFORMATION
  Report Type: 
  Country: None (occurrence: None)
  Receive Date: 20101120
  Receipt Date: 20101112
  Transmission Date: 20110411
  Serious: Yes (Other)
  Sender: FDA-Public Use
  Company Number: US-AMGEN-USASP2010005086

PATIENT

DRUGS (3)
  1. ENBREL [Suspect]
     Indication: PSORIASIS
     Dates: start: 20100817
  2. ANTIBIOTICS [Suspect]
  3. ANTIHYPERTENSIVES [Suspect]

REACTIONS (6)
  - DRY THROAT [None]
  - HEADACHE [None]
  - HYPERTENSION [None]
  - NASAL CONGESTION [None]
  - RHINORRHOEA [None]
  - THROAT IRRITATION [None]
